FAERS Safety Report 7960904-X (Version None)
Quarter: 2011Q4

REPORT INFORMATION
  Report Type: 
  Country: None (occurrence: None)
  Receive Date: 20111201
  Receipt Date: 20111201
  Transmission Date: 20120403
  Serious: No
  Sender: FDA-Public Use
  Company Number: None

PATIENT
  Age: 66 Year
  Sex: Female
  Weight: 77.1115 kg

DRUGS (1)
  1. BONIVA [Suspect]
     Indication: OSTEOPOROSIS
     Dosage: 1 PILL ONCE A MONTH
     Dates: start: 20111029

REACTIONS (5)
  - PAIN [None]
  - ACTIVITIES OF DAILY LIVING IMPAIRED [None]
  - GASTROINTESTINAL PAIN [None]
  - CONDITION AGGRAVATED [None]
  - HYPOPHAGIA [None]
